FAERS Safety Report 7894276-6 (Version None)
Quarter: 2011Q4

REPORT INFORMATION
  Report Type: 
  Country: None (occurrence: None)
  Receive Date: 20111104
  Receipt Date: 20111027
  Transmission Date: 20120403
  Serious: Yes (Hospitalization)
  Sender: FDA-Public Use
  Company Number: US-ABBOTT-11P-163-0869409-00

PATIENT
  Sex: Male

DRUGS (1)
  1. HUMIRA [Suspect]
     Indication: CROHN'S DISEASE
     Dates: start: 20110801, end: 20110901

REACTIONS (4)
  - PYREXIA [None]
  - OROPHARYNGEAL PAIN [None]
  - RASH GENERALISED [None]
  - ACUTE FEBRILE NEUTROPHILIC DERMATOSIS [None]
